FAERS Safety Report 4437840-9 (Version None)
Quarter: 2004Q3

REPORT INFORMATION
  Report Type: 
  Country: None (occurrence: None)
  Receive Date: 20040831
  Receipt Date: 20040825
  Transmission Date: 20050211
  Serious: Yes (Hospitalization)
  Sender: FDA-Public Use
  Company Number: 200416393US

PATIENT
  Sex: Female

DRUGS (5)
  1. LOVENOX [Suspect]
     Indication: BLOOD DISORDER
     Route: 058
     Dates: start: 20040501, end: 20040819
  2. PINDOLOL [Concomitant]
     Indication: HYPERTENSION
     Dosage: DOSE: UNK
  3. FOLTX [Concomitant]
     Indication: THROMBOSIS
     Dosage: DOSE: NOT PROVIDED
  4. FISH OIL [Concomitant]
     Indication: BLOOD CHOLESTEROL INCREASED
     Dosage: DOSE: NOT PROVIDED
  5. PRENATAL VITAMINS [Concomitant]
     Dosage: DOSE: NOT PROVIDED

REACTIONS (4)
  - ABORTION SPONTANEOUS [None]
  - BLOOD IRON DECREASED [None]
  - DRUG EXPOSURE DURING PREGNANCY [None]
  - STILLBIRTH [None]
